FAERS Safety Report 4517694-2 (Version None)
Quarter: 2004Q4

REPORT INFORMATION
  Report Type: 
  Country: None (occurrence: None)
  Receive Date: 20041203
  Receipt Date: 20041123
  Transmission Date: 20050328
  Serious: Yes (Other)
  Sender: FDA-Public Use
  Company Number: 200419085US

PATIENT
  Age: 69 Year
  Sex: Female
  Weight: 55.5 kg

DRUGS (9)
  1. TAXOTERE [Suspect]
     Indication: LUNG NEOPLASM MALIGNANT
     Dosage: DOSE: 56 (3 WEEKS ON, 1 WEEK OFF)
     Dates: start: 20040928, end: 20041102
  2. ALOXI [Concomitant]
     Indication: PREMEDICATION
     Dosage: DOSE: 0.25 (IV PUSH ONE HOUR PRIOR TO TAXOTERE)
     Route: 042
     Dates: start: 20040928, end: 20041102
  3. ATIVAN [Concomitant]
     Indication: PREMEDICATION
     Dosage: DOSE: 1 (ONE HOUR PRIOR TO TAXOTERE)
     Route: 042
     Dates: start: 20040928, end: 20041102
  4. DECADRON [Concomitant]
     Indication: PREMEDICATION
     Dosage: DOSE: 8 (ONE HOUR PRIOR TO TAXOTERE)
     Route: 042
     Dates: start: 20040928, end: 20041102
  5. ZOMETA [Concomitant]
     Dates: start: 20041026
  6. LABETALOL [Concomitant]
  7. DARVOCET-N 100 [Concomitant]
     Dosage: DOSE: PRN
  8. PEPCID AC [Concomitant]
     Dosage: DOSE: PRN
  9. IMODIUM [Concomitant]
     Dosage: DOSE: PRN

REACTIONS (3)
  - BLINDNESS UNILATERAL [None]
  - PAPILLOEDEMA [None]
  - VISUAL ACUITY REDUCED [None]
